FAERS Safety Report 7731759-3 (Version None)
Quarter: 2011Q3

REPORT INFORMATION
  Report Type: 
  Country: None (occurrence: None)
  Receive Date: 20110906
  Receipt Date: 20110824
  Transmission Date: 20111222
  Serious: Yes (Other)
  Sender: FDA-Public Use
  Company Number: PHHY2011JP52714

PATIENT
  Sex: Female

DRUGS (11)
  1. ESTRADIOL AND NORETHINDRONE ACETATE [Suspect]
     Indication: HORMONE REPLACEMENT THERAPY
     Dosage: UNK UKN, THREE TIME PER WEEK
     Route: 062
     Dates: start: 20100318, end: 20101218
  2. PYRIDOXAL PHOSPHATE HYDRATE [Suspect]
     Dosage: UNK UKN, UNK
     Route: 048
     Dates: start: 20100624, end: 20101111
  3. ISOSORBIDE DINITRATE [Suspect]
     Indication: MENIERE'S DISEASE
     Dosage: UNK UKN, UNK
     Route: 048
  4. BETAHISTINE MESILATE [Suspect]
     Indication: MENIERE'S DISEASE
     Dosage: UNK UKN, UNK
     Route: 048
  5. COIX SEED [Concomitant]
     Dosage: UNK UKN, UNK
     Dates: start: 20100624, end: 20101111
  6. ZOLPIDEM TARTRATE [Concomitant]
     Dosage: UNK UKN, UNK
  7. URAPIDIL [Concomitant]
     Dosage: UNK UKN, UNK
  8. KEISHIBUKURYOUGAN [Suspect]
     Dosage: UNK UKN, UNK
     Route: 048
  9. FLAVINE ADENINE DINUCLEOTIDE SODIUM [Suspect]
     Dosage: UNK UKN, UNK
     Route: 048
     Dates: start: 20100624, end: 20101111
  10. BOUFUUTSUUSHOUSAN [Suspect]
     Indication: CONSTIPATION
     Dosage: 6 G, UNK
     Route: 048
     Dates: start: 20101111, end: 20101218
  11. ETIZOLAM [Suspect]
     Dosage: UNK UKN, UNK
     Route: 048

REACTIONS (11)
  - HEPATIC FUNCTION ABNORMAL [None]
  - GAMMA-GLUTAMYLTRANSFERASE INCREASED [None]
  - BLOOD ALKALINE PHOSPHATASE INCREASED [None]
  - HEPATITIS [None]
  - WHITE BLOOD CELL COUNT DECREASED [None]
  - BLOOD LACTATE DEHYDROGENASE INCREASED [None]
  - RED BLOOD CELL COUNT DECREASED [None]
  - ALANINE AMINOTRANSFERASE INCREASED [None]
  - ASPARTATE AMINOTRANSFERASE INCREASED [None]
  - INCORRECT DOSE ADMINISTERED [None]
  - BLOOD CREATINE PHOSPHOKINASE INCREASED [None]
